FAERS Safety Report 21483916 (Version 1)
Quarter: 2022Q4

REPORT INFORMATION
  Report Type: Other
  Country: US (occurrence: None)
  Receive Date: 20221020
  Receipt Date: 20221020
  Transmission Date: 20230112
  Serious: Yes (Other)
  Sender: FDA-Public Use
  Company Number: US-ROCHE-3199574

PATIENT
  Age: 72 Year
  Sex: Female
  Weight: 81.720 kg

DRUGS (1)
  1. OCREVUS [Suspect]
     Active Substance: OCRELIZUMAB
     Indication: Multiple sclerosis
     Dosage: ONGOING: YES, 300MG EVERY 2 WEEK, THEN 600MG, EVERY 6 MONTHS, DATE OF TREATMENT: 20/SEP/2022
     Route: 042
     Dates: start: 202001

REACTIONS (7)
  - Joint stiffness [Recovered/Resolved]
  - Feeling hot [Recovered/Resolved]
  - Swelling [Recovered/Resolved]
  - Arthritis bacterial [Recovered/Resolved]
  - Fall [Unknown]
  - Skin laceration [Unknown]
  - White blood cell count increased [Unknown]

NARRATIVE: CASE EVENT DATE: 20220907
